FAERS Safety Report 6492503-3 (Version None)
Quarter: 2009Q4

REPORT INFORMATION
  Report Type: 
  Country: None (occurrence: None)
  Receive Date: 20091214
  Receipt Date: 20091204
  Transmission Date: 20100525
  Serious: Yes (Other)
  Sender: FDA-Public Use
  Company Number: CA-ROCHE-672779

PATIENT
  Age: 83 Year
  Sex: Male
  Weight: 93 kg

DRUGS (19)
  1. TAMIFLU [Suspect]
     Route: 048
     Dates: start: 20090312, end: 20090321
  2. ACETAMINOPHEN AND CODEINE PHOSPHATE [Concomitant]
     Dosage: 1 TABLET AT BEDTIME
  3. ALLOPURINOL [Concomitant]
  4. AMLODIPINE [Concomitant]
  5. CALCIUM CARBONATE [Concomitant]
  6. CELECOXIB [Concomitant]
     Dates: end: 20090318
  7. CITALOPRAM HYDROBROMIDE [Concomitant]
     Dosage: HALF TABLET
  8. CLOPIDOGREL [Concomitant]
  9. DOCUSATE CA [Concomitant]
  10. FERROUS SULFATE TAB [Concomitant]
  11. FUROSEMIDE [Concomitant]
     Dosage: 1.5 TABLET IN MORNING
  12. HYDROCHLOROTHIAZIDE [Concomitant]
  13. CARBIDOPA AND LEVODOPA [Concomitant]
     Dosage: STRENGTH: 200/50 MG
  14. METFORMIN HCL [Concomitant]
  15. RANITIDINE [Concomitant]
  16. FLUTICASONE/SALMETEROL [Concomitant]
     Dosage: FORM: PUFF
  17. SENNA [Concomitant]
     Dosage: STRENGTH: 8.6; 1 TABLET AT BEDTIME
  18. VITAMINE D [Concomitant]
  19. ZOPICLONE [Concomitant]
     Dosage: 1 TAB AT BEDTIME

REACTIONS (2)
  - RENAL CELL CARCINOMA [None]
  - THIRST [None]
